FAERS Safety Report 4298891-0 (Version None)
Quarter: 2004Q1

REPORT INFORMATION
  Report Type: 
  Country: None (occurrence: None)
  Receive Date: 20040126
  Receipt Date: 20031020
  Transmission Date: 20041129
  Serious: No
  Sender: FDA-Public Use
  Company Number: USA031050295

PATIENT
  Age: 5 Year
  Sex: Female
  Weight: 23 kg

DRUGS (3)
  1. STRATTERA [Suspect]
     Dosage: 25 MG/DAY
     Dates: start: 20030701
  2. PROZAC [Suspect]
     Dosage: 5 MG
     Dates: start: 20031001, end: 20031001
  3. IMPRAMINE HCL [Concomitant]

REACTIONS (8)
  - AGITATION [None]
  - ANGER [None]
  - CRYING [None]
  - DISTURBANCE IN ATTENTION [None]
  - DRUG INTERACTION [None]
  - INSOMNIA [None]
  - MOOD SWINGS [None]
  - PSYCHOMOTOR HYPERACTIVITY [None]
